FAERS Safety Report 7780520-2 (Version None)
Quarter: 2011Q3

REPORT INFORMATION
  Report Type: 
  Country: None (occurrence: None)
  Receive Date: 20110923
  Receipt Date: 20110921
  Transmission Date: 20111222
  Serious: Yes (Hospitalization)
  Sender: FDA-Public Use
  Company Number: DAV-CLO-11-07

PATIENT
  Age: 65 Year
  Sex: Female

DRUGS (6)
  1. HYDRALAZINE HCL [Concomitant]
  2. AMLODIPINE [Concomitant]
  3. METOPROLOL TARTRATE [Concomitant]
  4. LISINOPRIL [Concomitant]
  5. CLONIDINE [Suspect]
     Indication: HYPERTENSION
     Dosage: 0.1 MG. TWICE DAILY
  6. FUROSEMIDE [Concomitant]

REACTIONS (5)
  - SINUS ARRHYTHMIA [None]
  - VISION BLURRED [None]
  - SINUS BRADYCARDIA [None]
  - DYSARTHRIA [None]
  - BLOOD PRESSURE SYSTOLIC INCREASED [None]
